FAERS Safety Report 14224802 (Version 1)
Quarter: 2017Q4

REPORT INFORMATION
  Report Type: Spontaneous
  Country: US (occurrence: US)
  Receive Date: 20171127
  Receipt Date: 20171127
  Transmission Date: 20180321
  Serious: No
  Sender: FDA-Public Use
  Company Number: US-IROKO PHARMACEUTICALS LLC-US-I09001-17-00060

PATIENT
  Age: 70 Year
  Sex: Female

DRUGS (2)
  1. ZORVOLEX [Suspect]
     Active Substance: DICLOFENAC
     Indication: INTERVERTEBRAL DISC PROTRUSION
     Route: 048
     Dates: start: 20170508, end: 20170511
  2. ZORVOLEX [Suspect]
     Active Substance: DICLOFENAC
     Indication: PAIN

REACTIONS (1)
  - Abdominal pain [Recovered/Resolved]

NARRATIVE: CASE EVENT DATE: 20170510
